FAERS Safety Report 8356341-9 (Version None)
Quarter: 2012Q2

REPORT INFORMATION
  Report Type: 
  Country: None (occurrence: None)
  Receive Date: 20120514
  Receipt Date: 20120509
  Transmission Date: 20120825
  Serious: Yes (Death, Hospitalization)
  Sender: FDA-Public Use
  Company Number: TN-SANOFI-AVENTIS-2012SA033069

PATIENT
  Age: 75 Year
  Sex: Male

DRUGS (6)
  1. PLAVIX [Suspect]
     Indication: MYOCARDIAL INFARCTION
     Route: 048
     Dates: start: 20111207, end: 20120326
  2. BISOPROLOL FUMARATE [Concomitant]
     Dates: end: 20120326
  3. RAMIPRIL [Concomitant]
     Dates: end: 20120326
  4. ASPIRIN [Concomitant]
     Dates: end: 20120326
  5. ATORVASTATIN CALCIUM [Concomitant]
     Dates: end: 20120326
  6. PLAVIX [Suspect]
     Indication: STENT PLACEMENT
     Route: 048
     Dates: start: 20111207, end: 20120326

REACTIONS (2)
  - PULMONARY TUBERCULOSIS [None]
  - HYPOXIA [None]
